FAERS Safety Report 20731247 (Version 1)
Quarter: 2022Q2

REPORT INFORMATION
  Report Type: Spontaneous
  Country: US (occurrence: US)
  Receive Date: 20220420
  Receipt Date: 20220420
  Transmission Date: 20220721
  Serious: Yes (Other)
  Sender: FDA-Public Use
  Company Number: US-BAYER-2022A052910

PATIENT
  Age: 14 Year
  Sex: Male

DRUGS (3)
  1. KOGENATE FS [Suspect]
     Active Substance: ANTIHEMOPHILIC FACTOR, HUMAN RECOMBINANT
     Dosage: 2500 IU
  2. KOGENATE FS [Suspect]
     Active Substance: ANTIHEMOPHILIC FACTOR, HUMAN RECOMBINANT
     Dosage: 1 DF, TO TREAT EYE BLEED
     Dates: start: 20220322, end: 20220322
  3. KOGENATE FS [Suspect]
     Active Substance: ANTIHEMOPHILIC FACTOR, HUMAN RECOMBINANT
     Dosage: 1 DF, TO TREAT KNEE BLEEDING
     Dates: start: 20220401, end: 20220401

REACTIONS (4)
  - Eye haemorrhage [Recovered/Resolved]
  - Eye injury [None]
  - Haemarthrosis [Recovered/Resolved]
  - Fall [None]

NARRATIVE: CASE EVENT DATE: 20220320
